FAERS Safety Report 5406111-6 (Version None)
Quarter: 2007Q3

REPORT INFORMATION
  Report Type: 
  Country: None (occurrence: None)
  Receive Date: 20070806
  Receipt Date: 20070724
  Transmission Date: 20080115
  Serious: Yes (Hospitalization)
  Sender: FDA-Public Use
  Company Number: US-ROCHE-507142

PATIENT
  Age: 53 Year
  Sex: Male
  Weight: 88 kg

DRUGS (4)
  1. PEGASYS [Suspect]
     Indication: HEPATITIS C
     Dosage: DOSAGE FORM REPORTED AS PRE-FILLED SYRINGE
     Route: 058
     Dates: start: 20070426
  2. RIBAVIRIN [Suspect]
     Indication: HEPATITIS C
     Route: 048
     Dates: start: 20070426
  3. ALDACTONE [Concomitant]
  4. NADOLOL [Concomitant]

REACTIONS (12)
  - ANAEMIA [None]
  - ASCITES [None]
  - ATELECTASIS [None]
  - BACTERAEMIA [None]
  - CHRONIC HEPATIC FAILURE [None]
  - HEPATIC CIRRHOSIS [None]
  - HEPATIC ENCEPHALOPATHY [None]
  - PERITONITIS BACTERIAL [None]
  - PLEURAL EFFUSION [None]
  - PNEUMONIA STAPHYLOCOCCAL [None]
  - PORTAL HYPERTENSION [None]
  - VARICES OESOPHAGEAL [None]
